FAERS Safety Report 7134793-X (Version None)
Quarter: 2010Q4

REPORT INFORMATION
  Report Type: 
  Country: None (occurrence: None)
  Receive Date: 20101203
  Receipt Date: 20101126
  Transmission Date: 20110411
  Serious: Yes (Death)
  Sender: FDA-Public Use
  Company Number: US-ROCHE-745447

PATIENT
  Age: 53 Year
  Sex: Male
  Weight: 108.7 kg

DRUGS (14)
  1. BLINDED BEVACIZUMAB [Suspect]
     Indication: GLIOBLASTOMA MULTIFORME
     Route: 065
     Dates: start: 20101001
  2. CAMPTOSAR [Suspect]
     Indication: GLIOBLASTOMA MULTIFORME
     Dosage: LAST DOSE: 10 NOVEMNER 2010. TOTAL DOSE: 300 MG.
     Route: 042
     Dates: start: 20101001
  3. TEMOZOLOMIDE [Suspect]
     Indication: GLIOBLASTOMA MULTIFORME
     Route: 048
     Dates: start: 20100719
  4. TEMOZOLOMIDE [Suspect]
     Route: 048
     Dates: start: 20100827
  5. CIPROFLOXACIN [Concomitant]
  6. COUMADIN [Concomitant]
  7. DEPAKOTE [Concomitant]
  8. DEXAMETHASONE [Concomitant]
  9. INSULIN [Concomitant]
  10. NORCO [Concomitant]
  11. OMEPRAZOLE [Concomitant]
  12. ONDANSETRON [Concomitant]
  13. TRAZODONE HCL [Concomitant]
  14. ATIVAN [Concomitant]

REACTIONS (4)
  - DEEP VEIN THROMBOSIS [None]
  - DISEASE PROGRESSION [None]
  - GLIOBLASTOMA MULTIFORME [None]
  - MALIGNANT NEOPLASM PROGRESSION [None]
